FAERS Safety Report 5429162-4 (Version None)
Quarter: 2007Q3

REPORT INFORMATION
  Report Type: 
  Country: None (occurrence: None)
  Receive Date: 20070829
  Receipt Date: 20070815
  Transmission Date: 20080115
  Serious: Yes (Hospitalization, Other)
  Sender: FDA-Public Use
  Company Number: US-ELI_LILLY_AND_COMPANY-US200708003271

PATIENT
  Age: 50 Year
  Sex: Female

DRUGS (9)
  1. CYMBALTA [Suspect]
     Indication: DEPRESSION
     Dosage: 90 MG, DAILY (1/D)
     Dates: start: 20070101, end: 20070401
  2. CYMBALTA [Suspect]
     Dosage: 60 MG, DAILY (1/D)
     Dates: start: 20070701
  3. CYMBALTA [Suspect]
     Dosage: 60 MG, 2/D
     Dates: start: 20070401, end: 20070701
  4. SEROQUEL [Concomitant]
     Dosage: UNK, UNK
     Dates: start: 20070401
  5. TOPAMAX [Concomitant]
  6. VERAPAMIL [Concomitant]
     Indication: BLOOD PRESSURE
  7. HYDROCHLOROTHIAZIDE [Concomitant]
     Indication: BLOOD PRESSURE
  8. SYNTHROID [Concomitant]
  9. VISTARIL [Concomitant]
     Indication: PANIC ATTACK
     Dosage: UNK, AS NEEDED

REACTIONS (12)
  - CONVULSION [None]
  - DEPRESSION [None]
  - FALL [None]
  - FEAR [None]
  - PANIC ATTACK [None]
  - PARAESTHESIA [None]
  - SOMNOLENCE [None]
  - SPEECH DISORDER [None]
  - SUICIDAL IDEATION [None]
  - SWELLING [None]
  - VARICOSE VEIN [None]
  - WEIGHT INCREASED [None]
